FAERS Safety Report 24860631 (Version 1)
Quarter: 2025Q1

REPORT INFORMATION
  Report Type: Spontaneous
  Country: US (occurrence: US)
  Receive Date: 20250120
  Receipt Date: 20250120
  Transmission Date: 20250408
  Serious: No
  Sender: DR REDDYS
  Company Number: US-DRL-USA-USA/2025/01/000353

PATIENT
  Age: 5 Year
  Sex: Female
  Weight: 16.19 kg

DRUGS (3)
  1. JAVYGTOR [Suspect]
     Active Substance: SAPROPTERIN DIHYDROCHLORIDE
     Indication: Phenylketonuria
     Dosage: 300 MG ONCE A DAY BY MOUTH, ONCE DAILY
     Route: 048
  2. Duocal powder [Concomitant]
     Indication: Product used for unknown indication
     Route: 065
  3. Benefiber 3g/4g powder [Concomitant]
     Indication: Product used for unknown indication
     Route: 065

REACTIONS (2)
  - Nasopharyngitis [Unknown]
  - Eating disorder [Unknown]
